FAERS Safety Report 18135011 (Version 1)
Quarter: 2020Q3

REPORT INFORMATION
  Report Type: Spontaneous
  Country: DE (occurrence: DE)
  Receive Date: 20200811
  Receipt Date: 20200811
  Transmission Date: 20201103
  Serious: Yes (Other)
  Sender: FDA-Public Use
  Company Number: DE-PFIZER INC-2020301620

PATIENT
  Sex: Female

DRUGS (1)
  1. UNACID (AMPICILLIN SODIUM\SULBACTAM SODIUM) [Suspect]
     Active Substance: AMPICILLIN SODIUM\SULBACTAM SODIUM
     Dosage: UNK

REACTIONS (10)
  - Mental impairment [Unknown]
  - Pain [Unknown]
  - Cardiovascular disorder [Unknown]
  - Tendon pain [Unknown]
  - Blood pressure decreased [Unknown]
  - Nausea [Unknown]
  - Diarrhoea [Unknown]
  - Pyrexia [Unknown]
  - Heart rate increased [Unknown]
  - Mental disorder [Unknown]
